FAERS Safety Report 6298016-6 (Version None)
Quarter: 2009Q3

REPORT INFORMATION
  Report Type: 
  Country: None (occurrence: None)
  Receive Date: 20090805
  Receipt Date: 20090729
  Transmission Date: 20100115
  Serious: Yes (Other)
  Sender: FDA-Public Use
  Company Number: US-AMGEN-QUU354889

PATIENT
  Sex: Female
  Weight: 127.6 kg

DRUGS (8)
  1. EPOGEN [Suspect]
     Indication: RENAL FAILURE CHRONIC
     Route: 058
     Dates: start: 20080919
  2. ENBREL [Concomitant]
  3. LISINOPRIL [Concomitant]
  4. SIMVASTATIN [Concomitant]
  5. INSULIN [Concomitant]
  6. TOPAMAX [Concomitant]
  7. MECLIZINE [Concomitant]
  8. UNSPECIFIED MEDICATION [Concomitant]

REACTIONS (1)
  - DERMATITIS BULLOUS [None]
